FAERS Safety Report 4863602-4 (Version None)
Quarter: 2005Q4

REPORT INFORMATION
  Report Type: 
  Country: None (occurrence: None)
  Receive Date: 20051222
  Receipt Date: 20050519
  Transmission Date: 20060501
  Serious: No
  Sender: FDA-Public Use
  Company Number: US-GLAXOSMITHKLINE-A0559376A

PATIENT
  Age: 66 Year
  Sex: Male

DRUGS (13)
  1. FLONASE [Suspect]
     Dosage: 2SPR PER DAY
     Route: 045
  2. LISINOPRIL [Concomitant]
  3. LEVOTHYROXINE SODIUM [Concomitant]
  4. GLUCOSAMINE [Concomitant]
  5. SAW PALMETTO [Concomitant]
  6. BETA-CAROTENE [Concomitant]
  7. COENZYME Q10 [Concomitant]
  8. GINKO BILOBA [Concomitant]
  9. CALCIUM/MAGNESIUM/ZINC [Concomitant]
  10. VIT E [Concomitant]
  11. VIT C [Concomitant]
  12. MULTI-VITAMIN [Concomitant]
  13. ECHINACEA [Concomitant]

REACTIONS (2)
  - ARRHYTHMIA [None]
  - BLOOD THYROID STIMULATING HORMONE INCREASED [None]
